FAERS Safety Report 20057551 (Version 2)
Quarter: 2021Q4

REPORT INFORMATION
  Report Type: Spontaneous
  Country: US (occurrence: US)
  Receive Date: 20211111
  Receipt Date: 20211115
  Transmission Date: 20220303
  Serious: No
  Sender: FDA-Public Use
  Company Number: US-SA-SAC20211108000833

PATIENT
  Age: 70 Year
  Sex: Male

DRUGS (15)
  1. DUPIXENT [Suspect]
     Active Substance: DUPILUMAB
     Indication: Nasal polyps
     Dosage: 300 MG, QOW
     Route: 058
     Dates: start: 20200303
  2. DUPIXENT [Suspect]
     Active Substance: DUPILUMAB
     Indication: Dermatitis atopic
  3. BROMFENAC [Concomitant]
     Active Substance: BROMFENAC SODIUM
  4. BUDESONIDE [Concomitant]
     Active Substance: BUDESONIDE
  5. BUDESONIDE [Concomitant]
     Active Substance: BUDESONIDE
  6. DILTIAZEM [Concomitant]
     Active Substance: DILTIAZEM
  7. JANUMET [Concomitant]
     Active Substance: METFORMIN HYDROCHLORIDE\SITAGLIPTIN PHOSPHATE
  8. LISINOPRIL [Concomitant]
     Active Substance: LISINOPRIL
  9. MONTELUKAST [Concomitant]
     Active Substance: MONTELUKAST SODIUM
  10. OZEMPIC [Concomitant]
     Active Substance: SEMAGLUTIDE
  11. PANTOPRAZOLE [Concomitant]
     Active Substance: PANTOPRAZOLE
  12. SIMVASTATIN [Concomitant]
     Active Substance: SIMVASTATIN
  13. GLIMEPIRIDE [Concomitant]
     Active Substance: GLIMEPIRIDE
  14. JARDIANCE [Concomitant]
     Active Substance: EMPAGLIFLOZIN
  15. DULERA [Concomitant]
     Active Substance: FORMOTEROL FUMARATE DIHYDRATE\MOMETASONE FUROATE

REACTIONS (1)
  - Product use issue [Unknown]

NARRATIVE: CASE EVENT DATE: 20211024
